FAERS Safety Report 16368597 (Version 2)
Quarter: 2019Q2

REPORT INFORMATION
  Report Type: Report from Study
  Country: US (occurrence: US)
  Receive Date: 20190529
  Receipt Date: 20190607
  Transmission Date: 20190711
  Serious: Yes (Life-Threatening, Hospitalization)
  Sender: FDA-Public Use
  Company Number: PHEH2019US022717

PATIENT
  Age: 49 Year
  Sex: Female
  Weight: 120.18 kg

DRUGS (1)
  1. COSENTYX [Suspect]
     Active Substance: SECUKINUMAB
     Indication: PSORIASIS
     Dosage: 300 MG, QW
     Route: 058

REACTIONS (9)
  - Asthma [Unknown]
  - Urticaria [Unknown]
  - Tongue oedema [Unknown]
  - Wheezing [Unknown]
  - Anaphylactic reaction [Not Recovered/Not Resolved]
  - Respiratory distress [Unknown]
  - Respiratory failure [Unknown]
  - Swollen tongue [Unknown]
  - Tongue spasm [Unknown]

NARRATIVE: CASE EVENT DATE: 20190518
